FAERS Safety Report 12199789 (Version 1)
Quarter: 2016Q1

REPORT INFORMATION
  Report Type: Spontaneous
  Country: CN (occurrence: CN)
  Receive Date: 20160322
  Receipt Date: 20160322
  Transmission Date: 20160526
  Serious: Yes (Death)
  Sender: FDA-Public Use
  Company Number: CN-OTSUKA-2016_006667

PATIENT
  Age: 74 Year
  Sex: Male

DRUGS (4)
  1. DACOGEN [Suspect]
     Active Substance: DECITABINE
     Indication: WALDENSTROM^S MACROGLOBULINAEMIA
     Dosage: UNK
     Route: 042
     Dates: start: 2011
  2. DACOGEN [Suspect]
     Active Substance: DECITABINE
     Indication: HODGKIN^S DISEASE
  3. OXALIPLATIN. [Suspect]
     Active Substance: OXALIPLATIN
     Indication: WALDENSTROM^S MACROGLOBULINAEMIA
     Dosage: UNK
     Route: 065
     Dates: start: 2011
  4. OXALIPLATIN. [Suspect]
     Active Substance: OXALIPLATIN
     Indication: HODGKIN^S DISEASE

REACTIONS (4)
  - Respiratory failure [Fatal]
  - Off label use [Unknown]
  - Sepsis [Fatal]
  - Product use issue [Unknown]
